FAERS Safety Report 12810992 (Version 1)
Quarter: 2016Q4

REPORT INFORMATION
  Report Type: Spontaneous
  Country: US (occurrence: US)
  Receive Date: 20161005
  Receipt Date: 20161005
  Transmission Date: 20170207
  Serious: Yes (Life-Threatening, Hospitalization, Disabling)
  Sender: FDA-Public Use
  Company Number: None

PATIENT
  Age: 65 Year
  Sex: Female
  Weight: 72.19 kg

DRUGS (7)
  1. PROACTIV SOLUTION BLACKHEAD DISSOLVING [Suspect]
     Active Substance: SALICYLIC ACID
     Indication: ACNE
     Dosage: 1/4 TSP./EST. ONLY 1 TIME RUB ON FACE + NECK?
     Route: 061
     Dates: start: 20150322, end: 20150323
  2. UV TREATMENTS [Concomitant]
  3. ADVIL [Concomitant]
     Active Substance: IBUPROFEN
  4. VITAMIN B [Concomitant]
     Active Substance: VITAMIN B
  5. ELIDEL [Concomitant]
     Active Substance: PIMECROLIMUS
  6. VITAMIN C [Concomitant]
     Active Substance: ASCORBIC ACID
  7. VITAMIN E [Concomitant]
     Active Substance: .ALPHA.-TOCOPHEROL

REACTIONS (11)
  - Vision blurred [None]
  - Chemical injury [None]
  - Pharyngeal oedema [None]
  - Local swelling [None]
  - Headache [None]
  - Skin disorder [None]
  - Swelling face [None]
  - Eye swelling [None]
  - Depression [None]
  - Impaired work ability [None]
  - Vitiligo [None]

NARRATIVE: CASE EVENT DATE: 20150322
